FAERS Safety Report 10003978 (Version 5)
Quarter: 2015Q3

REPORT INFORMATION
  Report Type: Spontaneous
  Country: US (occurrence: US)
  Receive Date: 20140312
  Receipt Date: 20150805
  Transmission Date: 20151125
  Serious: Yes (Disabling, Congenital Anomaly, Other)
  Sender: FDA-Public Use
  Company Number: US-ABBVIE-13P-163-1154274-00

PATIENT
  Sex: Female

DRUGS (4)
  1. DEPAKOTE [Suspect]
     Active Substance: DIVALPROEX SODIUM
     Indication: PATERNAL DRUGS AFFECTING FOETUS
     Route: 050
  2. DEPAKENE [Suspect]
     Active Substance: VALPROIC ACID
     Route: 050
  3. DEPAKOTE [Suspect]
     Active Substance: DIVALPROEX SODIUM
     Route: 064
  4. DEPAKENE [Suspect]
     Active Substance: VALPROIC ACID
     Indication: PATERNAL DRUGS AFFECTING FOETUS
     Route: 064

REACTIONS (19)
  - Body height below normal [Unknown]
  - Congenital oral malformation [Unknown]
  - Congenital cardiovascular anomaly [Recovered/Resolved]
  - Congenital nose malformation [Unknown]
  - Tooth development disorder [Unknown]
  - Visual impairment [Unknown]
  - Foetal exposure during pregnancy [Unknown]
  - Paternal drugs affecting foetus [Unknown]
  - Corrective lens user [Unknown]
  - Dysmorphism [Unknown]
  - Foetal anticonvulsant syndrome [Unknown]
  - Premature baby [Unknown]
  - Toothache [Unknown]
  - Growth retardation [Unknown]
  - Congenital cardiovascular anomaly [Unknown]
  - Cardiac murmur [Recovered/Resolved]
  - Congenital hand malformation [Unknown]
  - Multiple injuries [Unknown]
  - Low birth weight baby [Unknown]
